FAERS Safety Report 22092361 (Version 3)
Quarter: 2023Q2

REPORT INFORMATION
  Report Type: Spontaneous
  Country: US (occurrence: US)
  Receive Date: 20230314
  Receipt Date: 20230401
  Transmission Date: 20230722
  Serious: No
  Sender: FDA-Public Use
  Company Number: US-002147023-NVSC2023US057451

PATIENT
  Age: 57 Year
  Sex: Female

DRUGS (1)
  1. LEQVIO [Suspect]
     Active Substance: INCLISIRAN SODIUM
     Indication: Low density lipoprotein increased
     Dosage: 284 MG, INITIAL DOSE-3 MONTHS, EVERY 6 MONTHS AFTER THAT
     Route: 058
     Dates: start: 20230101, end: 20230310

REACTIONS (2)
  - Low density lipoprotein increased [Unknown]
  - Therapy non-responder [Not Recovered/Not Resolved]

NARRATIVE: CASE EVENT DATE: 20230101
